FAERS Safety Report 9063556 (Version 3)
Quarter: 2013Q3

REPORT INFORMATION
  Report Type: Spontaneous
  Country: FR (occurrence: FR)
  Receive Date: 20130213
  Receipt Date: 20130829
  Transmission Date: 20140515
  Serious: Yes (Other)
  Sender: FDA-Public Use
  Company Number: FR-SANOFI-AVENTIS-2013SA011077

PATIENT
  Age: 44 Year
  Sex: Female

DRUGS (2)
  1. RIFINAH [Suspect]
     Indication: TUBERCULOSIS
     Route: 065
     Dates: start: 20110303
  2. RIFADINE [Suspect]
     Indication: PRODUCT USED FOR UNKNOWN INDICATION
     Dosage: SYRUP 100 MG
     Route: 065
     Dates: start: 20110303

REACTIONS (5)
  - Genital infection [Unknown]
  - Pruritus [Unknown]
  - Acne [Unknown]
  - Foetal death [Unknown]
  - Exposure during pregnancy [Unknown]
